FAERS Safety Report 20761261 (Version 2)
Quarter: 2022Q2

REPORT INFORMATION
  Report Type: Spontaneous
  Country: US (occurrence: US)
  Receive Date: 20220428
  Receipt Date: 20220511
  Transmission Date: 20220721
  Serious: Yes (Other)
  Sender: FDA-Public Use
  Company Number: US-TEVA-2022-US-2030210

PATIENT
  Sex: Female

DRUGS (5)
  1. WARFARIN [Suspect]
     Active Substance: WARFARIN
     Indication: Pulmonary embolism
     Route: 065
     Dates: start: 201003, end: 2011
  2. WARFARIN [Suspect]
     Active Substance: WARFARIN
     Route: 065
     Dates: end: 201808
  3. PREDNISONE [Concomitant]
     Active Substance: PREDNISONE
     Indication: Bronchitis
     Route: 065
     Dates: start: 2012
  4. RALTEGRAVIR [Concomitant]
     Active Substance: RALTEGRAVIR
     Indication: HIV infection
     Dosage: 800 MILLIGRAM DAILY;
     Route: 065
     Dates: start: 201302
  5. Emtricitabine/tenofovir-disoproxil-fumarate [Concomitant]
     Indication: HIV infection
     Route: 065
     Dates: start: 201302

REACTIONS (1)
  - Acquired protein S deficiency [Recovered/Resolved]
